FAERS Safety Report 9317098 (Version 1)
Quarter: 2013Q2

REPORT INFORMATION
  Report Type: Spontaneous
  Country: US (occurrence: US)
  Receive Date: 20130530
  Receipt Date: 20130530
  Transmission Date: 20140414
  Serious: No
  Sender: FDA-Public Use
  Company Number: US-NOVEN-12US004627

PATIENT
  Age: 8 Year
  Sex: Male
  Weight: 21.77 kg

DRUGS (4)
  1. DAYTRANA [Suspect]
     Indication: ATTENTION DEFICIT/HYPERACTIVITY DISORDER
     Dosage: 10 MG, QD
     Route: 062
     Dates: start: 2012
  2. DAYTRANA [Suspect]
     Dosage: 10 MG, QD
     Dates: start: 201204
  3. STRATTERA [Concomitant]
     Indication: ASPERGER^S DISORDER
     Dosage: 18 MG, UNK
     Route: 048
  4. FLUOXETINE [Concomitant]
     Indication: ANXIETY
     Dosage: 10 MG, UNK
     Route: 048

REACTIONS (6)
  - Increased appetite [Unknown]
  - Disturbance in attention [Not Recovered/Not Resolved]
  - Drug dose omission [Not Recovered/Not Resolved]
  - Drug ineffective [Not Recovered/Not Resolved]
  - Drug administration error [Not Recovered/Not Resolved]
  - Product quality issue [Not Recovered/Not Resolved]
